FAERS Safety Report 25043288 (Version 1)
Quarter: 2025Q1

REPORT INFORMATION
  Report Type: Report from Study
  Country: US (occurrence: US)
  Receive Date: 20250305
  Receipt Date: 20250305
  Transmission Date: 20250408
  Serious: Yes (Hospitalization)
  Sender: JAZZ
  Company Number: US-JAZZ PHARMACEUTICALS-2025-US-004673

PATIENT
  Sex: Female

DRUGS (1)
  1. EPIDIOLEX [Suspect]
     Active Substance: CANNABIDIOL
     Indication: Lennox-Gastaut syndrome
     Dosage: 8 MILLILITER, BID
     Route: 048

REACTIONS (3)
  - Enzyme level decreased [Recovered/Resolved]
  - Atonic seizures [Recovering/Resolving]
  - Product administration interrupted [Unknown]
